FAERS Safety Report 24841956 (Version 1)
Quarter: 2025Q1

REPORT INFORMATION
  Report Type: Spontaneous
  Country: US (occurrence: US)
  Receive Date: 20250114
  Receipt Date: 20250114
  Transmission Date: 20250408
  Serious: No
  Sender: TAKEDA
  Company Number: US-TAKEDA-2025TUS003783

PATIENT
  Sex: Female
  Weight: 86 kg

DRUGS (9)
  1. EOHILIA [Suspect]
     Active Substance: BUDESONIDE
     Indication: Eosinophilic oesophagitis
     Dosage: 10 MILLILITER, BID
  2. EPIPEN [Concomitant]
     Active Substance: EPINEPHRINE
     Indication: Food allergy
  3. BREYNA [Concomitant]
     Active Substance: BUDESONIDE\FORMOTEROL FUMARATE
     Indication: Asthma
  4. PROTONIX [Concomitant]
     Active Substance: PANTOPRAZOLE SODIUM
  5. SINGULAIR [Concomitant]
     Active Substance: MONTELUKAST SODIUM
  6. PEPCID [Concomitant]
     Active Substance: FAMOTIDINE
  7. ALLEGRA [Concomitant]
     Active Substance: FEXOFENADINE HYDROCHLORIDE
     Indication: Asthma
  8. ALBUTEROL [Concomitant]
     Active Substance: ALBUTEROL
  9. FLONASE [Concomitant]
     Active Substance: FLUTICASONE PROPIONATE

REACTIONS (2)
  - Wrong technique in product usage process [Unknown]
  - Asthma [Unknown]
